FAERS Safety Report 17063286 (Version 1)
Quarter: 2019Q4

REPORT INFORMATION
  Report Type: Spontaneous
  Country: GB (occurrence: GB)
  Receive Date: 20191122
  Receipt Date: 20191122
  Transmission Date: 20200122
  Serious: Yes (Other)
  Sender: FDA-Public Use
  Company Number: GB-TEVA-2019-GB-1139341

PATIENT
  Age: 57 Year
  Sex: Male
  Weight: 98.87 kg

DRUGS (2)
  1. BENDROFLUMETHIAZIDE [Concomitant]
     Active Substance: BENDROFLUMETHIAZIDE
     Dosage: 2.5 MG 1 DAYS
  2. VALSARTAN. [Suspect]
     Active Substance: VALSARTAN
     Indication: HYPERTENSION
     Dosage: 80 MG 1 DAYS
     Route: 048
     Dates: start: 19960320, end: 20180615

REACTIONS (4)
  - Angina pectoris [Recovered/Resolved]
  - Diarrhoea [Not Recovered/Not Resolved]
  - Inflammation [Recovered/Resolved]
  - Irritable bowel syndrome [Unknown]

NARRATIVE: CASE EVENT DATE: 20160415
